FAERS Safety Report 7319508-4 (Version None)
Quarter: 2011Q1

REPORT INFORMATION
  Report Type: 
  Country: None (occurrence: None)
  Receive Date: 20110228
  Receipt Date: 20100510
  Transmission Date: 20110831
  Serious: No
  Sender: FDA-Public Use
  Company Number: A0856338A

PATIENT
  Age: 42 Year
  Sex: Female
  Weight: 67.3 kg

DRUGS (3)
  1. KLONOPIN [Concomitant]
  2. LAMICTAL [Suspect]
     Indication: PANIC ATTACK
     Dosage: 25MG PER DAY
     Route: 048
     Dates: start: 20100407, end: 20100414
  3. CYMBALTA [Concomitant]

REACTIONS (2)
  - DRUG INTOLERANCE [None]
  - ANXIETY [None]
